FAERS Safety Report 10724402 (Version 2)
Quarter: 2015Q1

REPORT INFORMATION
  Report Type: Spontaneous
  Country: US (occurrence: US)
  Receive Date: 20150120
  Receipt Date: 20150128
  Transmission Date: 20150721
  Serious: Yes (Hospitalization)
  Sender: FDA-Public Use
  Company Number: US-BAYER-2015-008221

PATIENT
  Age: 34 Year
  Sex: Female
  Weight: 149.66 kg

DRUGS (5)
  1. LEVAQUIN [Concomitant]
     Active Substance: LEVOFLOXACIN
     Indication: THROMBOPHLEBITIS
     Dosage: 500 MG,
  2. ROCEPHIN [Concomitant]
     Active Substance: CEFTRIAXONE SODIUM
  3. YASMIN [Suspect]
     Active Substance: DROSPIRENONE\ETHINYL ESTRADIOL
     Indication: AMENORRHOEA
  4. CEPHALEXIN. [Concomitant]
     Active Substance: CEPHALEXIN
  5. KEFLEX [Concomitant]
     Active Substance: CEPHALEXIN
     Dosage: 500 MG,
     Route: 048

REACTIONS (2)
  - Thrombophlebitis superficial [None]
  - Pulmonary embolism [None]

NARRATIVE: CASE EVENT DATE: 20070706
